FAERS Safety Report 18473898 (Version 1)
Quarter: 2020Q4

REPORT INFORMATION
  Report Type: Spontaneous
  Country: CN (occurrence: CN)
  Receive Date: 20201106
  Receipt Date: 20201106
  Transmission Date: 20210114
  Serious: Yes (Hospitalization, Other)
  Sender: FDA-Public Use
  Company Number: CN-PFIZER INC-2020429625

PATIENT
  Age: 68 Year
  Sex: Male
  Weight: 66 kg

DRUGS (3)
  1. INLYTA [Suspect]
     Active Substance: AXITINIB
     Indication: RENAL NEOPLASM
     Dosage: 5 MG, 2X/DAY
     Route: 048
     Dates: start: 20200730, end: 20200904
  2. BAI ZE AN [Suspect]
     Active Substance: TISLELIZUMAB
     Indication: RENAL NEOPLASM
     Dosage: 200 MG, 1X/DAY
     Route: 041
     Dates: start: 20201015, end: 20201015
  3. PREDNISONE. [Suspect]
     Active Substance: PREDNISONE
     Dosage: 20 MG
     Dates: start: 20201027, end: 20201102

REACTIONS (10)
  - Haematochezia [Recovering/Resolving]
  - Decreased appetite [Recovering/Resolving]
  - Haemorrhoids [Unknown]
  - Large intestinal ulcer [Unknown]
  - Diarrhoea [Recovering/Resolving]
  - Abdominal pain [Recovering/Resolving]
  - Gastritis erosive [Unknown]
  - Asthenia [Recovering/Resolving]
  - Chronic gastritis [Unknown]
  - Constipation [Recovering/Resolving]

NARRATIVE: CASE EVENT DATE: 2020
